FAERS Safety Report 15854204 (Version 1)
Quarter: 2019Q1

REPORT INFORMATION
  Report Type: Spontaneous
  Country: US (occurrence: US)
  Receive Date: 20190122
  Receipt Date: 20190122
  Transmission Date: 20190417
  Serious: No
  Sender: FDA-Public Use
  Company Number: US-TEVA-2018-US-993836

PATIENT
  Sex: Female

DRUGS (1)
  1. CICLOPIROX 1% SHAMPOO [Suspect]
     Active Substance: CICLOPIROX
     Dosage: 1 PERCENT
     Dates: start: 20181224

REACTIONS (1)
  - Alopecia [Unknown]

NARRATIVE: CASE EVENT DATE: 20181224
